FAERS Safety Report 14619874 (Version 2)
Quarter: 2018Q1

REPORT INFORMATION
  Report Type: Report from Study
  Country: US (occurrence: US)
  Receive Date: 20180309
  Receipt Date: 20180313
  Transmission Date: 20180509
  Serious: No
  Sender: FDA-Public Use
  Company Number: US-ASTRAZENECA-2017SF21993

PATIENT
  Sex: Male

DRUGS (5)
  1. GLUCOSAMINE-CHONDROITI [Concomitant]
  2. SAW PALMETTO 160 MG [Concomitant]
  3. TAGRISSO [Suspect]
     Active Substance: OSIMERTINIB
     Indication: NON-SMALL CELL LUNG CANCER
     Route: 048
     Dates: start: 20171114
  4. ASPIRIN. [Concomitant]
     Active Substance: ASPIRIN
  5. FISH OIL OMEGA-3 [Concomitant]

REACTIONS (3)
  - Hypertension [Unknown]
  - Mouth ulceration [Recovered/Resolved]
  - Pulmonary mass [Recovering/Resolving]
